FAERS Safety Report 5160403-7 (Version None)
Quarter: 2006Q4

REPORT INFORMATION
  Report Type: 
  Country: None (occurrence: None)
  Receive Date: 20061121
  Receipt Date: 20061110
  Transmission Date: 20070319
  Serious: Yes (Other)
  Sender: FDA-Public Use
  Company Number: 2006SP006192

PATIENT
  Age: 50 Year
  Sex: Female
  Weight: 154.223 kg

DRUGS (7)
  1. PEG-INTRON [Suspect]
     Indication: HEPATITIS C
     Dates: start: 20060621
  2. REBETOL [Suspect]
     Indication: HEPATITIS C
     Dosage: 1400 MG;QD;PO; 800 MG;QD; PO
     Route: 048
     Dates: start: 20060621, end: 20061029
  3. REBETOL [Suspect]
     Indication: HEPATITIS C
     Dosage: 1400 MG;QD;PO; 800 MG;QD; PO
     Route: 048
     Dates: start: 20061106
  4. LEVOXYL [Concomitant]
  5. LISINOPRIL W/HYDROCHLOROTHIAZIDE [Concomitant]
  6. HYDROCODONE W/APAP [Concomitant]
  7. PHENERGAN [Concomitant]

REACTIONS (14)
  - ANAEMIA [None]
  - ASTHENIA [None]
  - BACK PAIN [None]
  - CHOKING SENSATION [None]
  - DEHYDRATION [None]
  - DEPRESSION [None]
  - DRUG ERUPTION [None]
  - DYSPNOEA [None]
  - INCISION SITE HAEMORRHAGE [None]
  - NAUSEA [None]
  - OXYGEN SATURATION DECREASED [None]
  - TREMOR [None]
  - URTICARIA [None]
  - WEIGHT DECREASED [None]
